FAERS Safety Report 21393525 (Version 1)
Quarter: 2022Q3

REPORT INFORMATION
  Report Type: Report from Study
  Country: CA (occurrence: CA)
  Receive Date: 20220929
  Receipt Date: 20220929
  Transmission Date: 20221027
  Serious: Yes (Other)
  Sender: FDA-Public Use
  Company Number: CA-JNJFOC-20220945296

PATIENT
  Age: 63 Year
  Sex: Female

DRUGS (2)
  1. SIMPONI [Suspect]
     Active Substance: GOLIMUMAB
     Indication: Rheumatoid arthritis
     Route: 058
     Dates: start: 20220518
  2. SIMPONI [Suspect]
     Active Substance: GOLIMUMAB
     Route: 058

REACTIONS (7)
  - Rib fracture [Recovering/Resolving]
  - Fall [Not Recovered/Not Resolved]
  - Infection [Unknown]
  - Limb injury [Not Recovered/Not Resolved]
  - Neck mass [Unknown]
  - Rotator cuff syndrome [Unknown]
  - Off label use [Unknown]
